FAERS Safety Report 6336461-0 (Version None)
Quarter: 2009Q3

REPORT INFORMATION
  Report Type: 
  Country: None (occurrence: None)
  Receive Date: 20090901
  Receipt Date: 20090826
  Transmission Date: 20100115
  Serious: Yes (Other)
  Sender: FDA-Public Use
  Company Number: A0795799A

PATIENT
  Sex: Female

DRUGS (1)
  1. AVANDIA [Suspect]
     Indication: DRUG USE FOR UNKNOWN INDICATION
     Dosage: 8MG UNKNOWN
     Route: 065
     Dates: start: 20050101

REACTIONS (5)
  - CARDIAC DISORDER [None]
  - DYSPNOEA [None]
  - NAUSEA [None]
  - UPPER LIMB FRACTURE [None]
  - VOMITING [None]
